FAERS Safety Report 15384725 (Version 2)
Quarter: 2018Q3

REPORT INFORMATION
  Report Type: Report from Study
  Country: DK (occurrence: DK)
  Receive Date: 20180914
  Receipt Date: 20180925
  Transmission Date: 20181010
  Serious: Yes (Hospitalization)
  Sender: FDA-Public Use
  Company Number: DK-ROCHE-2028888

PATIENT
  Age: 26 Year
  Sex: Male
  Weight: 65 kg

DRUGS (10)
  1. ATEZOLIZUMAB. [Suspect]
     Active Substance: ATEZOLIZUMAB
     Indication: NEOPLASM
     Dosage: DATE OF MOST RECENT DOSE OF ATEZOLIZUMAB PRIOR TO AE ONSET 20/OCT/2017 1200 MG AT 8:25
     Route: 042
     Dates: start: 20161216
  2. MALFIN [Concomitant]
     Active Substance: MORPHINE SULFATE
     Route: 048
     Dates: start: 20150624
  3. GABAPENTIN. [Concomitant]
     Active Substance: GABAPENTIN
     Indication: TUMOUR PAIN
     Route: 048
     Dates: start: 20160412, end: 20170305
  4. GABAPENTIN. [Concomitant]
     Active Substance: GABAPENTIN
     Route: 048
     Dates: start: 20170306
  5. METADON [Concomitant]
     Active Substance: METHADONE HYDROCHLORIDE
     Indication: TUMOUR PAIN
     Route: 048
     Dates: start: 20160329, end: 20170305
  6. MORFIN (DENMARK) [Concomitant]
     Route: 058
     Dates: start: 20160405
  7. IBUMETIN [Concomitant]
     Active Substance: IBUPROFEN
     Route: 048
     Dates: start: 20161213
  8. AMITRIPTYLIN [Concomitant]
     Active Substance: AMITRIPTYLINE
     Indication: TUMOUR PAIN
     Route: 048
     Dates: start: 20170305
  9. PAMOL [Concomitant]
     Active Substance: ACETAMINOPHEN
     Route: 048
     Dates: start: 20161213
  10. METADON [Concomitant]
     Active Substance: METHADONE HYDROCHLORIDE
     Route: 048
     Dates: start: 20170306

REACTIONS (1)
  - Hydrocephalus [Not Recovered/Not Resolved]

NARRATIVE: CASE EVENT DATE: 20171029
